FAERS Safety Report 9916956 (Version 2)
Quarter: 2014Q1

REPORT INFORMATION
  Report Type: Spontaneous
  Country: PR (occurrence: PR)
  Receive Date: 20140221
  Receipt Date: 20140305
  Transmission Date: 20141002
  Serious: Yes (Other)
  Sender: FDA-Public Use
  Company Number: PR-BAYER-2014-024389

PATIENT
  Sex: Female

DRUGS (1)
  1. GADAVIST [Suspect]
     Indication: NUCLEAR MAGNETIC RESONANCE IMAGING BRAIN
     Dosage: 7.5 ML WITH SALINE
     Dates: start: 20140213

REACTIONS (2)
  - Dyspnoea [Recovered/Resolved]
  - Respiratory tract congestion [Recovered/Resolved]
